FAERS Safety Report 25803749 (Version 1)
Quarter: 2025Q3

REPORT INFORMATION
  Report Type: Report from Study
  Country: JP (occurrence: JP)
  Receive Date: 20250915
  Receipt Date: 20250915
  Transmission Date: 20251021
  Serious: Yes (Other)
  Sender: ROCHE
  Company Number: JP-ROCHE-10000384394

PATIENT

DRUGS (2)
  1. TOCILIZUMAB [Suspect]
     Active Substance: TOCILIZUMAB
     Indication: Polymyalgia rheumatica
     Route: 042
  2. TOCILIZUMAB [Suspect]
     Active Substance: TOCILIZUMAB
     Route: 058

REACTIONS (8)
  - Haemorrhage [Unknown]
  - Pruritus [Unknown]
  - Arterial haemorrhage [Unknown]
  - Pyelonephritis [Unknown]
  - Renal abscess [Unknown]
  - Coronavirus infection [Unknown]
  - Fracture [Unknown]
  - Off label use [Unknown]
